FAERS Safety Report 4966146-4 (Version None)
Quarter: 2006Q2

REPORT INFORMATION
  Report Type: 
  Country: None (occurrence: None)
  Receive Date: 20060407
  Receipt Date: 20060109
  Transmission Date: 20061013
  Serious: Yes (Disabling)
  Sender: FDA-Public Use
  Company Number: 2006UW00353

PATIENT
  Sex: Female
  Weight: 39.8 kg

DRUGS (5)
  1. ARIMIDEX [Suspect]
     Indication: BREAST CANCER
     Route: 048
     Dates: start: 20051221, end: 20051227
  2. ARIMIDEX [Suspect]
     Route: 048
     Dates: start: 20051212, end: 20051215
  3. MULTIVITAMIN [Concomitant]
     Route: 048
  4. CALCIUM GLUCONATE [Concomitant]
     Route: 048
  5. FIBER [Concomitant]
     Route: 048

REACTIONS (11)
  - AFFECT LABILITY [None]
  - ARTHRALGIA [None]
  - BLOOD PRESSURE INCREASED [None]
  - CHILLS [None]
  - FATIGUE [None]
  - HEADACHE [None]
  - HEART RATE INCREASED [None]
  - INFLUENZA LIKE ILLNESS [None]
  - NAUSEA [None]
  - PHARYNGOLARYNGEAL PAIN [None]
  - TACHYCARDIA [None]
